FAERS Safety Report 9176851 (Version 1)
Quarter: 2013Q1

REPORT INFORMATION
  Report Type: Spontaneous
  Country: US (occurrence: US)
  Receive Date: 20130321
  Receipt Date: 20130321
  Transmission Date: 20140127
  Serious: No
  Sender: FDA-Public Use
  Company Number: PHEH2013US004770

PATIENT
  Sex: Female
  Weight: 66.21 kg

DRUGS (6)
  1. TASIGNA [Suspect]
     Indication: CHRONIC MYELOID LEUKAEMIA
     Dosage: 300 MG, BID
     Route: 048
     Dates: start: 20110116
  2. PRAVASTATIN [Concomitant]
     Dosage: 40 MG, QD
  3. ASPIRIN [Concomitant]
     Dosage: 162 MG, QD
  4. ZETIA [Concomitant]
     Dosage: 40 MG, QD
  5. FLUTICASONE PROPIONATE [Concomitant]
  6. PREMARIN [Concomitant]

REACTIONS (6)
  - Dry skin [Not Recovered/Not Resolved]
  - Alopecia [Not Recovered/Not Resolved]
  - Leukocytosis [Unknown]
  - Musculoskeletal pain [Unknown]
  - Cough [Unknown]
  - Cardiac flutter [Unknown]
